FAERS Safety Report 9801116 (Version 1)
Quarter: 2014Q1

REPORT INFORMATION
  Report Type: Spontaneous
  Country: FR (occurrence: FR)
  Receive Date: 20140107
  Receipt Date: 20140107
  Transmission Date: 20141002
  Serious: Yes (Hospitalization)
  Sender: FDA-Public Use
  Company Number: FR-SA-2013SA136532

PATIENT
  Age: 68 Year
  Sex: Male

DRUGS (13)
  1. RIFADINE [Suspect]
     Indication: PRODUCT USED FOR UNKNOWN INDICATION
     Dosage: STRENGTH: 300 MG DOSE:1 UNIT(S)
     Route: 048
     Dates: start: 20131119, end: 20131126
  2. PARACETAMOL [Suspect]
     Indication: PRODUCT USED FOR UNKNOWN INDICATION
     Route: 048
     Dates: end: 20131125
  3. LOVENOX [Suspect]
     Indication: PRODUCT USED FOR UNKNOWN INDICATION
     Route: 058
     Dates: start: 20131114, end: 20131117
  4. ROCEPHINE [Suspect]
     Indication: DEVICE RELATED INFECTION
     Route: 042
     Dates: start: 20131113, end: 20131120
  5. FUNGIZONE [Suspect]
     Indication: PRODUCT USED FOR UNKNOWN INDICATION
     Route: 048
     Dates: start: 20131118, end: 20131129
  6. TOPALGIC [Suspect]
     Indication: PRODUCT USED FOR UNKNOWN INDICATION
     Dosage: STRENGTH: 200 MG DOSE:1 UNIT(S)
     Route: 048
     Dates: start: 20131029, end: 20131129
  7. VANCOCINE [Concomitant]
     Route: 042
     Dates: start: 20131114, end: 20131129
  8. LASILIX [Concomitant]
     Dosage: DOSE:2 UNIT(S)
     Route: 048
     Dates: end: 20131129
  9. ALDACTONE [Concomitant]
     Dosage: DOSE:1 UNIT(S)
     Route: 048
     Dates: end: 20131125
  10. DIFFU K [Concomitant]
     Dosage: DOSE:2 UNIT(S)
     Route: 048
     Dates: end: 20131125
  11. LEXOMIL [Concomitant]
     Route: 048
     Dates: end: 20131129
  12. ACUPAN [Concomitant]
     Dosage: DOSE:2 UNIT(S)
     Route: 048
     Dates: end: 20131129
  13. IMOVANE [Concomitant]
     Dosage: DOSE:0.5 UNIT(S)
     Route: 048
     Dates: end: 20131124

REACTIONS (4)
  - Hepatocellular injury [Recovered/Resolved]
  - Aspartate aminotransferase increased [Recovered/Resolved]
  - Alanine aminotransferase increased [Recovered/Resolved]
  - Blood alkaline phosphatase increased [Recovered/Resolved]
